FAERS Safety Report 16413764 (Version 1)
Quarter: 2019Q2

REPORT INFORMATION
  Report Type: Spontaneous
  Country: US (occurrence: US)
  Receive Date: 20190611
  Receipt Date: 20190611
  Transmission Date: 20190711
  Serious: Yes (Life-Threatening, Other)
  Sender: FDA-Public Use
  Company Number: US-SA-2019SA155651

PATIENT
  Age: 75 Year
  Sex: Female

DRUGS (2)
  1. TOUJEO [Suspect]
     Active Substance: INSULIN GLARGINE
     Dosage: 34 U, UNK
     Route: 065
  2. HUMALOG [Concomitant]
     Active Substance: INSULIN LISPRO
     Dosage: UNK UNK, TID
     Route: 065

REACTIONS (9)
  - Hepatic cirrhosis [Unknown]
  - Blood albumin decreased [Unknown]
  - Renal disorder [Unknown]
  - Nonalcoholic fatty liver disease [Unknown]
  - Swelling [Unknown]
  - Diabetes mellitus inadequate control [Unknown]
  - Dizziness [Unknown]
  - Hypothyroidism [Unknown]
  - Autoimmune thyroiditis [Unknown]
